FAERS Safety Report 5737758-5 (Version None)
Quarter: 2008Q2

REPORT INFORMATION
  Report Type: 
  Country: None (occurrence: None)
  Receive Date: 20080514
  Receipt Date: 20080508
  Transmission Date: 20081010
  Serious: Yes (Hospitalization, Other)
  Sender: FDA-Public Use
  Company Number: GB-AVENTIS-200813771GDDC

PATIENT
  Age: 58 Year
  Sex: Female

DRUGS (8)
  1. LANTUS [Suspect]
     Indication: TYPE 2 DIABETES MELLITUS
     Dosage: DOSE: UNK
     Route: 058
  2. ASPIRIN [Concomitant]
     Route: 048
  3. FUROSEMIDE [Concomitant]
  4. SPIRONOLACTONE [Concomitant]
  5. PERINDOPRIL ERBUMINE [Concomitant]
  6. ROSUVASTATIN [Concomitant]
  7. AMLODIPINE [Concomitant]
  8. METFORMIN HCL [Concomitant]

REACTIONS (1)
  - CEREBROVASCULAR ACCIDENT [None]
